FAERS Safety Report 16700572 (Version 2)
Quarter: 2020Q2

REPORT INFORMATION
  Report Type: Spontaneous
  Country: CA (occurrence: CA)
  Receive Date: 20190814
  Receipt Date: 20200508
  Transmission Date: 20200713
  Serious: Yes (Hospitalization)
  Sender: FDA-Public Use
  Company Number: CA-AUROBINDO-AUR-APL-2019-051936

PATIENT
  Age: 73 Year
  Sex: Female

DRUGS (3)
  1. MIRTAZAPINE TABLET [Suspect]
     Active Substance: MIRTAZAPINE
     Indication: DEPRESSION
     Dosage: 15 MILLIGRAM, ONCE A DAY
     Route: 065
  2. WARFARIN [Interacting]
     Active Substance: WARFARIN
     Indication: PRODUCT USED FOR UNKNOWN INDICATION
     Dosage: 6 MILLIGRAM, ONCE A DAY
     Route: 065
  3. MIRTAZAPINE TABLET [Interacting]
     Active Substance: MIRTAZAPINE
     Indication: DECREASED APPETITE

REACTIONS (2)
  - Drug interaction [Unknown]
  - International normalised ratio increased [Unknown]
